FAERS Safety Report 10249965 (Version 1)
Quarter: 2014Q2

REPORT INFORMATION
  Report Type: Spontaneous
  Country: US (occurrence: None)
  Receive Date: 20140618
  Receipt Date: 20140618
  Transmission Date: 20141212
  Serious: Yes (Life-Threatening, Hospitalization, Disabling)
  Sender: FDA-Public Use
  Company Number: None

PATIENT
  Age: 35 Year
  Sex: Female
  Weight: 62.14 kg

DRUGS (1)
  1. TAMIFLU [Suspect]
     Indication: INFLUENZA
     Dosage: 1 TWICE DAILY TAKEN BY MOUTH
     Route: 048

REACTIONS (5)
  - Pyrexia [None]
  - Delirium [None]
  - Weight decreased [None]
  - Insomnia [None]
  - Visual impairment [None]
